FAERS Safety Report 11883184 (Version 1)
Quarter: 2015Q4

REPORT INFORMATION
  Report Type: Spontaneous
  Country: US (occurrence: US)
  Receive Date: 20151231
  Receipt Date: 20151231
  Transmission Date: 20160305
  Serious: No
  Sender: FDA-Public Use
  Company Number: US-009507513-1512USA014182

PATIENT
  Sex: Male
  Weight: 97.52 kg

DRUGS (8)
  1. NEURONTIN [Suspect]
     Active Substance: GABAPENTIN
  2. VICODIN [Suspect]
     Active Substance: ACETAMINOPHEN\HYDROCODONE BITARTRATE
     Indication: PAIN
     Dosage: 2 DF, QAM
     Dates: start: 2006
  3. ENBREL [Concomitant]
     Active Substance: ETANERCEPT
     Indication: PSORIASIS
     Dosage: UNK
     Dates: start: 2005
  4. VICODIN [Suspect]
     Active Substance: ACETAMINOPHEN\HYDROCODONE BITARTRATE
     Dosage: 2 DF, QPM
     Dates: start: 2006
  5. CYMBALTA [Suspect]
     Active Substance: DULOXETINE HYDROCHLORIDE
     Dosage: 60 MG, A DAY
  6. SINGULAIR [Suspect]
     Active Substance: MONTELUKAST SODIUM
     Dosage: 30 MG, UNK
     Route: 048
  7. CYMBALTA [Suspect]
     Active Substance: DULOXETINE HYDROCHLORIDE
     Indication: HYPOAESTHESIA
     Dosage: 30 MG, A DAY
  8. LYRICA [Suspect]
     Active Substance: PREGABALIN
     Indication: INTERVERTEBRAL DISC PROTRUSION
     Dosage: 50 MG 3 AT NIGHT
     Route: 048

REACTIONS (13)
  - Hyperphagia [Unknown]
  - Overdose [Unknown]
  - Hypertension [Unknown]
  - Motion sickness [Unknown]
  - Amnesia [Unknown]
  - Vision blurred [Unknown]
  - Anger [Unknown]
  - Dysgraphia [Unknown]
  - Dysphagia [Unknown]
  - Weight increased [Unknown]
  - Compulsive shopping [Unknown]
  - Insomnia [Unknown]
  - Hypersomnia [Unknown]
